FAERS Safety Report 7833670-6 (Version None)
Quarter: 2011Q4

REPORT INFORMATION
  Report Type: 
  Country: None (occurrence: None)
  Receive Date: 20111024
  Receipt Date: 20111017
  Transmission Date: 20120403
  Serious: Yes (Life-Threatening)
  Sender: FDA-Public Use
  Company Number: BE-CELGENEUS-013-21880-11101872

PATIENT
  Sex: Male
  Weight: 89 kg

DRUGS (7)
  1. DAUNORUBICIN HCL [Suspect]
     Indication: ACUTE MYELOID LEUKAEMIA
     Route: 041
     Dates: start: 20110907
  2. FRAXIPARINE [Concomitant]
     Route: 065
  3. DAUNORUBICIN HCL [Suspect]
  4. CYTARABINE [Suspect]
     Indication: ACUTE MYELOID LEUKAEMIA
     Route: 041
     Dates: start: 20110907
  5. CYTARABINE [Suspect]
  6. REVLIMID [Suspect]
     Indication: ACUTE MYELOID LEUKAEMIA
     Route: 048
     Dates: start: 20110907
  7. REVLIMID [Suspect]

REACTIONS (1)
  - CARDIAC TAMPONADE [None]
